FAERS Safety Report 25373624 (Version 1)
Quarter: 2025Q2

REPORT INFORMATION
  Report Type: Spontaneous
  Country: US (occurrence: US)
  Receive Date: 20250529
  Receipt Date: 20250529
  Transmission Date: 20250717
  Serious: No
  Sender: ELI LILLY AND COMPANY
  Company Number: US-ELI_LILLY_AND_COMPANY-US202505022954

PATIENT
  Age: 64 Year
  Sex: Female

DRUGS (3)
  1. BASAGLAR [Suspect]
     Active Substance: INSULIN GLARGINE
     Indication: Diabetes mellitus
     Dosage: 20 U, DAILY
     Route: 058
     Dates: start: 2023
  2. BASAGLAR [Suspect]
     Active Substance: INSULIN GLARGINE
     Indication: Diabetes mellitus
     Dosage: 20 U, DAILY
     Route: 058
     Dates: start: 2023
  3. BASAGLAR [Suspect]
     Active Substance: INSULIN GLARGINE
     Dosage: 20 U, DAILY
     Route: 058
     Dates: start: 2023

REACTIONS (6)
  - Dizziness [Unknown]
  - Weight decreased [Unknown]
  - Memory impairment [Unknown]
  - Arthritis [Unknown]
  - Visual impairment [Unknown]
  - Blood glucose decreased [Unknown]
